FAERS Safety Report 8152429-6 (Version None)
Quarter: 2012Q1

REPORT INFORMATION
  Report Type: 
  Country: None (occurrence: None)
  Receive Date: 20120221
  Receipt Date: 20120209
  Transmission Date: 20120608
  Serious: Yes (Hospitalization)
  Sender: FDA-Public Use
  Company Number: CA-JNJFOC-20120205726

PATIENT
  Sex: Male
  Weight: 90.1 kg

DRUGS (3)
  1. IBUPROFEN (ADVIL) [Concomitant]
     Route: 065
  2. REMICADE [Suspect]
     Indication: COLITIS ULCERATIVE
     Dosage: 29 INFUSIONS TILL DATE
     Route: 042
  3. PAIN KILLERS [Concomitant]
     Route: 065

REACTIONS (1)
  - HIP FRACTURE [None]
